FAERS Safety Report 6708982-X (Version None)
Quarter: 2010Q2

REPORT INFORMATION
  Report Type: 
  Country: None (occurrence: None)
  Receive Date: 20100504
  Receipt Date: 20100429
  Transmission Date: 20101027
  Serious: Yes (Death)
  Sender: FDA-Public Use
  Company Number: PHHY2010DE27696

PATIENT
  Age: 36 Year
  Sex: Female

DRUGS (2)
  1. OXYTOCIN [Suspect]
  2. METHERGINE [Suspect]

REACTIONS (15)
  - ARTERIOSCLEROSIS CORONARY ARTERY [None]
  - CARDIAC FAILURE ACUTE [None]
  - CARDIOGENIC SHOCK [None]
  - CORONARY ARTERIAL STENT INSERTION [None]
  - CORONARY ARTERY DISEASE [None]
  - CORONARY ARTERY STENOSIS [None]
  - ELECTROCARDIOGRAM ST SEGMENT DEPRESSION [None]
  - EXTRACORPOREAL MEMBRANE OXYGENATION [None]
  - LEFT VENTRICULAR DYSFUNCTION [None]
  - MULTI-ORGAN FAILURE [None]
  - MYOCARDIAL DEPRESSION [None]
  - MYOCARDIAL INFARCTION [None]
  - ORTHOPNOEA [None]
  - PNEUMONIA [None]
  - VENTRICULAR ARRHYTHMIA [None]
